FAERS Safety Report 15197215 (Version 1)
Quarter: 2018Q3

REPORT INFORMATION
  Report Type: Report from Study
  Country: IL (occurrence: IL)
  Receive Date: 20180725
  Receipt Date: 20180725
  Transmission Date: 20181010
  Serious: Yes (Death, Hospitalization, Other)
  Sender: FDA-Public Use
  Company Number: IL-ACTELION-A-US2017-148958

PATIENT
  Age: 67 Year
  Sex: Female

DRUGS (10)
  1. FUSID [Concomitant]
     Active Substance: FUROSEMIDE
  2. VENTAVIS [Suspect]
     Active Substance: ILOPROST
     Indication: PULMONARY HYPERTENSION
     Dosage: 1 DF, 5ID
     Route: 055
     Dates: start: 20150714
  3. VENTAVIS [Suspect]
     Active Substance: ILOPROST
     Dosage: 1 DF, 6/D
     Route: 055
     Dates: end: 2018
  4. CARDILOC [Concomitant]
     Active Substance: BISOPROLOL FUMARATE
  5. IMURAN [Concomitant]
     Active Substance: AZATHIOPRINE
  6. ENALADEX [Concomitant]
     Active Substance: ENALAPRIL MALEATE
  7. NOVORAPID [Concomitant]
     Active Substance: INSULIN ASPART
  8. VENTAVIS [Suspect]
     Active Substance: ILOPROST
     Dosage: 1 DF, QID
     Route: 055
  9. LIPITOR [Concomitant]
     Active Substance: ATORVASTATIN CALCIUM
  10. MICROPIRIN [Concomitant]
     Active Substance: ASPIRIN

REACTIONS (6)
  - Cor pulmonale [Unknown]
  - Dyspnoea [Recovering/Resolving]
  - Peritoneal dialysis complication [Recovering/Resolving]
  - Death [Fatal]
  - Inappropriate schedule of drug administration [Unknown]
  - Oedema peripheral [Recovering/Resolving]

NARRATIVE: CASE EVENT DATE: 201701
